FAERS Safety Report 10023878 (Version 2)
Quarter: 2014Q2

REPORT INFORMATION
  Report Type: Spontaneous
  Country: US (occurrence: US)
  Receive Date: 20140320
  Receipt Date: 20140415
  Transmission Date: 20141212
  Serious: Yes (Hospitalization, Disabling)
  Sender: FDA-Public Use
  Company Number: US-FRI-1000064754

PATIENT
  Age: 32 Year
  Sex: Female

DRUGS (4)
  1. SAPHRIS [Suspect]
     Indication: DEREALISATION
     Dosage: 5MG
     Route: 060
     Dates: start: 2014, end: 2014
  2. SAPHRIS [Suspect]
     Indication: DEPERSONALISATION
  3. KLONOPIN [Concomitant]
  4. SEROQUEL [Concomitant]

REACTIONS (4)
  - Sensory disturbance [Not Recovered/Not Resolved]
  - Unevaluable event [Not Recovered/Not Resolved]
  - Anxiety [Recovering/Resolving]
  - Off label use [Recovered/Resolved]
